FAERS Safety Report 10332829 (Version 1)
Quarter: 2014Q3

REPORT INFORMATION
  Report Type: Spontaneous
  Country: PL (occurrence: PL)
  Receive Date: 20140722
  Receipt Date: 20140722
  Transmission Date: 20150326
  Serious: Yes (Other)
  Sender: FDA-Public Use
  Company Number: PHHY2014PL087491

PATIENT
  Age: 36 Year
  Sex: Female

DRUGS (5)
  1. DEXAMETHASONE. [Suspect]
     Active Substance: DEXAMETHASONE
     Indication: DERMATITIS ATOPIC
     Dosage: 6 MG, DAILY FOR 3 DAYS
  2. BILASTINE [Concomitant]
     Active Substance: BILASTINE
     Indication: SKIN LESION
     Dosage: 20 MG, QD
  3. DEXAMETHASONE. [Suspect]
     Active Substance: DEXAMETHASONE
     Dosage: 4 MG, DAILY FOR 3 DAYS
  4. LEVOCETIRIZINE [Concomitant]
     Active Substance: LEVOCETIRIZINE
     Indication: SKIN LESION
     Dosage: 5 MG, QD
  5. DEXAMETHASONE. [Suspect]
     Active Substance: DEXAMETHASONE
     Indication: SKIN LESION
     Dosage: 8 MG, FOR 3 CONSECUTIVE DAYS
     Route: 030

REACTIONS (11)
  - Distractibility [Recovered/Resolved]
  - Mania [Recovered/Resolved]
  - Psychomotor hyperactivity [Recovered/Resolved]
  - Insomnia [Recovered/Resolved]
  - Elevated mood [Recovered/Resolved]
  - Hyperacusis [Recovered/Resolved]
  - Psychotic disorder [Recovered/Resolved]
  - Terminal insomnia [Recovered/Resolved]
  - Exaggerated startle response [Recovered/Resolved]
  - Grandiosity [Recovered/Resolved]
  - Anxiety [Recovered/Resolved]
